FAERS Safety Report 8481377-7 (Version None)
Quarter: 2012Q2

REPORT INFORMATION
  Report Type: 
  Country: None (occurrence: None)
  Receive Date: 20120625
  Receipt Date: 20120615
  Transmission Date: 20120825
  Serious: Yes (Death)
  Sender: FDA-Public Use
  Company Number: E2B_7140327

PATIENT
  Age: 85 Year
  Sex: Female

DRUGS (6)
  1. ALDACTONE (SPIRONOLACTONE) (25 MG, FILM-COATED TABLET) [Concomitant]
  2. FUROSEMIDE (FUROSEMIDE) [Concomitant]
  3. LEVOTHYROXINE SODIUM [Suspect]
     Indication: HYPOTHYROIDISM
     Dosage: (1 D)
     Route: 048
     Dates: end: 20090401
  4. WARFARIN SODIUM [Suspect]
     Indication: THROMBOSIS PROPHYLAXIS
     Route: 048
     Dates: end: 20090401
  5. ACFOL (FOLIC ACID) [Concomitant]
  6. SIMVASTATIN [Concomitant]

REACTIONS (3)
  - ATRIAL FIBRILLATION [None]
  - CEREBRAL HAEMORRHAGE [None]
  - SUBARACHNOID HAEMORRHAGE [None]
